FAERS Safety Report 21494656 (Version 4)
Quarter: 2022Q4

REPORT INFORMATION
  Report Type: Report from Study
  Country: HK (occurrence: HK)
  Receive Date: 20221021
  Receipt Date: 20221226
  Transmission Date: 20230112
  Serious: Yes (Hospitalization, Other)
  Sender: FDA-Public Use
  Company Number: HK-TAKEDA-2022TUS074198

PATIENT
  Age: 59 Year
  Sex: Female

DRUGS (1)
  1. MOBOCERTINIB [Suspect]
     Active Substance: MOBOCERTINIB
     Indication: Product used for unknown indication
     Dosage: 120 MILLIGRAM, QD
     Route: 065
     Dates: start: 20220916, end: 202210

REACTIONS (6)
  - Gastritis erosive [Unknown]
  - Oropharyngeal pain [Unknown]
  - Odynophagia [Unknown]
  - Pyrexia [Unknown]
  - Gastric ulcer [Unknown]
  - Malignant neoplasm progression [Unknown]

NARRATIVE: CASE EVENT DATE: 20220922
